FAERS Safety Report 14132492 (Version 5)
Quarter: 2018Q2

REPORT INFORMATION
  Report Type: Spontaneous
  Country: PT (occurrence: PT)
  Receive Date: 20171027
  Receipt Date: 20180619
  Transmission Date: 20180711
  Serious: Yes (Hospitalization, Other)
  Sender: FDA-Public Use
  Company Number: PT-009507513-1710PRT012675

PATIENT
  Age: 67 Year
  Sex: Male

DRUGS (1)
  1. KEYTRUDA [Suspect]
     Active Substance: PEMBROLIZUMAB
     Indication: MALIGNANT MELANOMA
     Dosage: UNK

REACTIONS (18)
  - Chronic kidney disease [Recovered/Resolved]
  - Pneumonia [Unknown]
  - Pyrexia [Recovered/Resolved]
  - Altered state of consciousness [Not Recovered/Not Resolved]
  - Meningitis [Unknown]
  - Dermatitis exfoliative [Recovered/Resolved]
  - Renal failure [Recovered/Resolved]
  - Confusional state [Recovered/Resolved]
  - Rash [Recovered/Resolved]
  - Septic shock [Recovered/Resolved]
  - Hemiparesis [Not Recovered/Not Resolved]
  - Acute respiratory distress syndrome [Recovered/Resolved]
  - Diarrhoea [Recovered/Resolved]
  - Hypophysitis [Recovered/Resolved]
  - Enterocolitis infectious [Recovered/Resolved]
  - Motor dysfunction [Not Recovered/Not Resolved]
  - Adverse event [Recovered/Resolved]
  - Hyponatraemia [Recovered/Resolved]

NARRATIVE: CASE EVENT DATE: 2017
